FAERS Safety Report 7268467-1 (Version None)
Quarter: 2011Q1

REPORT INFORMATION
  Report Type: 
  Country: None (occurrence: None)
  Receive Date: 20110121
  Receipt Date: 20110114
  Transmission Date: 20110831
  Serious: Yes (Death)
  Sender: FDA-Public Use
  Company Number: 2011MA000380

PATIENT
  Age: 63 Year
  Sex: Female

DRUGS (8)
  1. SERTRALINE [Concomitant]
  2. DIAZEPAM [Suspect]
     Indication: PRODUCT USED FOR UNKNOWN INDICATION
  3. LEVOTHYROXNIE [Concomitant]
  4. METHADONE (METHADONE) [Suspect]
     Indication: PAIN
     Dosage: 15 MG;BID;PO
     Route: 048
     Dates: start: 20100304, end: 20100309
  5. SUCRALFATE [Concomitant]
  6. BETHAHISTINE [Concomitant]
  7. CLONAZEPAM [Concomitant]
  8. PREV MEDS [Concomitant]

REACTIONS (1)
  - TOXICITY TO VARIOUS AGENTS [None]
